FAERS Safety Report 6348376-2 (Version None)
Quarter: 2009Q4

REPORT INFORMATION
  Report Type: 
  Country: None (occurrence: None)
  Receive Date: 20090908
  Receipt Date: 20090820
  Transmission Date: 20100525
  Serious: Yes (Hospitalization)
  Sender: FDA-Public Use
  Company Number: 001630

PATIENT
  Age: 70 Year
  Sex: Male

DRUGS (28)
  1. MELOXICAM [Suspect]
  2. OMEPRAZOLE [Suspect]
  3. THALIDOMIDE [Suspect]
  4. DEXAMETHASONE [Suspect]
  5. HYDROCODONE [Suspect]
  6. RANITIDINE HYDROCHLORIDE [Suspect]
  7. PROMETHAZINE HCL [Suspect]
  8. LIDOCAINE [Suspect]
  9. POLYETHYLENE GLYCOL [Suspect]
  10. TESTOSTERONE ENANTHATE [Suspect]
  11. PAMIDRONATE DISODIUM [Suspect]
     Dosage: (INTRAVENOUS (NOT OTHERWISE SPECIFIED))
     Route: 042
  12. CEFEPIME HYDROCHLORIDE [Suspect]
     Dosage: (INTRAVENOUS (NOT OTHERWISE SPECIFIED))
     Route: 042
  13. VANCOMYCIN HCL [Suspect]
     Dosage: (INTRAVENOUS (NOT OTHERWISE SPECIFIED))
     Route: 042
  14. FLUCONAZOLE [Suspect]
     Dosage: (ORAL)
     Route: 048
  15. MORPHINE SULFATE [Suspect]
  16. NALOXONE HYDROCHLORIDE [Suspect]
  17. ACETAMINOPHEN [Suspect]
  18. PANTOPRAZOLE SODIUM [Suspect]
  19. DIPHENHYDRAMINE HYDROCHLORIDE [Suspect]
  20. HEPARIN SODIUM [Suspect]
  21. ZOLPIDEM TARTRATE [Suspect]
  22. AMIODARONE HCL [Suspect]
  23. ALPRAZOLAM [Suspect]
  24. NEUPOGEN [Suspect]
  25. MEROPENEM [Suspect]
     Dosage: (INTRAVENOUS (NOT OTHERWISE SPECIFIED))
     Route: 042
  26. DAPTOMYCIN [Suspect]
  27. TOBRAMYCIN [Suspect]
  28. CASPOFUNGIN ACETATE [Suspect]

REACTIONS (12)
  - ACUTE GENERALISED EXANTHEMATOUS PUSTULOSIS [None]
  - ATRIAL FIBRILLATION [None]
  - BACK PAIN [None]
  - FEBRILE NEUTROPENIA [None]
  - HAEMATOCRIT DECREASED [None]
  - HAEMOGLOBIN DECREASED [None]
  - LETHARGY [None]
  - ORAL CANDIDIASIS [None]
  - OROPHARYNGEAL PAIN [None]
  - PSEUDOMONAS INFECTION [None]
  - STREPTOCOCCAL INFECTION [None]
  - UNRESPONSIVE TO STIMULI [None]
